FAERS Safety Report 4753391-6 (Version None)
Quarter: 2005Q3

REPORT INFORMATION
  Report Type: 
  Country: None (occurrence: None)
  Receive Date: 20050824
  Receipt Date: 20050809
  Transmission Date: 20060218
  Serious: Yes (Hospitalization, Other)
  Sender: FDA-Public Use
  Company Number: USA0508105000

PATIENT
  Age: 38 Year
  Sex: Male

DRUGS (1)
  1. HUMULIN N [Suspect]

REACTIONS (4)
  - BRAIN OPERATION [None]
  - COGNITIVE DISORDER [None]
  - DISTURBANCE IN ATTENTION [None]
  - POST PROCEDURAL COMPLICATION [None]
